FAERS Safety Report 8842240 (Version 1)
Quarter: 2012Q4

REPORT INFORMATION
  Report Type: Spontaneous
  Country: US (occurrence: None)
  Receive Date: 20121015
  Receipt Date: 20121015
  Transmission Date: 20130627
  Serious: Yes (Other)
  Sender: FDA-Public Use
  Company Number: None

PATIENT
  Age: 54 Year
  Sex: Female
  Weight: 104.33 kg

DRUGS (1)
  1. ATORVASTATIN 20MG [Suspect]
     Indication: HIGH CHOLESTEROL
     Route: 048
     Dates: start: 20100101, end: 20120101

REACTIONS (1)
  - Tinnitus [None]
